FAERS Safety Report 6200982-1 (Version None)
Quarter: 2009Q2

REPORT INFORMATION
  Report Type: 
  Country: None (occurrence: None)
  Receive Date: 20090525
  Receipt Date: 20090512
  Transmission Date: 20091009
  Serious: Yes (Other)
  Sender: FDA-Public Use
  Company Number: US-ROCHE-587600

PATIENT
  Sex: Male
  Weight: 81.6 kg

DRUGS (2)
  1. CAPECITABINE [Suspect]
     Indication: COLORECTAL CANCER
     Route: 048
     Dates: start: 20080716, end: 20090317
  2. AVASTIN [Concomitant]

REACTIONS (4)
  - ANAL FISTULA [None]
  - FEELING COLD [None]
  - PAIN IN EXTREMITY [None]
  - RASH [None]
